FAERS Safety Report 10906103 (Version 1)
Quarter: 2015Q1

REPORT INFORMATION
  Report Type: Spontaneous
  Country: US (occurrence: None)
  Receive Date: 20150302
  Receipt Date: 20150302
  Transmission Date: 20150721
  Serious: Yes (Hospitalization)
  Sender: FDA-Public Use
  Company Number: M2015-006

PATIENT
  Age: 40 Year
  Sex: Female
  Weight: 108.86 kg

DRUGS (1)
  1. CANDIDA ALBICANS. [Suspect]
     Active Substance: CANDIDA ALBICANS
     Indication: SKIN PAPILLOMA
     Dates: start: 20150206

REACTIONS (7)
  - Axillary pain [None]
  - Guillain-Barre syndrome [None]
  - Off label use [None]
  - Injection site pain [None]
  - Arthralgia [None]
  - Pyrexia [None]
  - Myalgia [None]

NARRATIVE: CASE EVENT DATE: 20150207
